FAERS Safety Report 4285688-0 (Version None)
Quarter: 2004Q1

REPORT INFORMATION
  Report Type: 
  Country: None (occurrence: None)
  Receive Date: 20040203
  Receipt Date: 20040114
  Transmission Date: 20041129
  Serious: Yes (Hospitalization)
  Sender: FDA-Public Use
  Company Number: HQWYE315414JAN04

PATIENT
  Age: 78 Year
  Sex: Female

DRUGS (11)
  1. BISOPROLOL FUMARATE [Suspect]
     Dosage: 10 MG 1X PER 1 DAY ORAL; 5 MG 1X PER 1 DAY ORAL
     Route: 048
     Dates: end: 20031205
  2. BISOPROLOL FUMARATE [Suspect]
     Dosage: 10 MG 1X PER 1 DAY ORAL; 5 MG 1X PER 1 DAY ORAL
     Route: 048
     Dates: start: 20031209
  3. ECAZIDE (CAPTOPRIL/HYDROCHLOROTHIAZIDE) [Suspect]
     Dosage: 0.5 MG 1X PER 1 DAY, ORAL
     Route: 048
     Dates: end: 20031205
  4. ISOPTIN [Suspect]
  5. LASIX [Suspect]
     Dosage: 20 TO 40 MG DAILY ORAL
     Route: 048
     Dates: start: 20031205
  6. LEXOMIL (BROMAZEPAM) [Suspect]
  7. LOXEEN (PRIDINOL MESILATE) [Suspect]
     Dosage: 50 MG 1 X PER 1 DAY ORAL
     Route: 048
     Dates: start: 20031205
  8. OMEPRAZOLE [Suspect]
  9. MOTILIUM [Suspect]
  10. RAMIPRIL [Suspect]
     Dosage: 2.5 MG 2X PER 1 DAY ORAL
     Route: 048
     Dates: start: 20031205
  11. ZOLOFT [Suspect]

REACTIONS (11)
  - BLOOD GLUCOSE INCREASED [None]
  - BLOOD PRESSURE DIASTOLIC DECREASED [None]
  - BLOOD PRESSURE SYSTOLIC INCREASED [None]
  - CARDIOMEGALY [None]
  - DRUG INEFFECTIVE [None]
  - DRUG WITHDRAWAL SYNDROME [None]
  - NODAL ARRHYTHMIA [None]
  - SINUS BRADYCARDIA [None]
  - SYNCOPE [None]
  - VERTIGO [None]
  - VISION BLURRED [None]
